FAERS Safety Report 5748451-7 (Version None)
Quarter: 2008Q2

REPORT INFORMATION
  Report Type: 
  Country: None (occurrence: None)
  Receive Date: 20080521
  Receipt Date: 20080505
  Transmission Date: 20081010
  Serious: Yes (Death)
  Sender: FDA-Public Use
  Company Number: 8032434

PATIENT
  Age: 76 Year
  Sex: Male

DRUGS (5)
  1. KEPPRA [Suspect]
     Indication: PROPHYLAXIS
     Dosage: 500 MG 2/D PO
     Route: 048
     Dates: start: 20060701
  2. DEXAMETHASONE TAB [Concomitant]
  3. RANITIDINE [Concomitant]
  4. LEXAPRO [Concomitant]
  5. ANZEMET [Concomitant]

REACTIONS (1)
  - URINE ODOUR ABNORMAL [None]
